FAERS Safety Report 13239110 (Version 6)
Quarter: 2018Q2

REPORT INFORMATION
  Report Type: Spontaneous
  Country: JP (occurrence: JP)
  Receive Date: 20170216
  Receipt Date: 20180417
  Transmission Date: 20180711
  Serious: Yes (Other)
  Sender: FDA-Public Use
  Company Number: JP-AEGERION PHARMACEUTICAL, INC-AEGR003005

PATIENT
  Age: 43 Year
  Sex: Male

DRUGS (102)
  1. VICCILLIN [Concomitant]
     Active Substance: AMPICILLIN
     Dosage: 2 G, QD
     Dates: start: 20161117, end: 20161124
  2. FIBLAST [Concomitant]
     Indication: DIABETIC FOOT
     Dosage: UNK
     Dates: start: 20161220, end: 20170119
  3. MYSER [Concomitant]
     Active Substance: DIFLUPREDNATE
     Indication: PRURITUS
     Dosage: UNK
     Dates: start: 20170119, end: 20170131
  4. CALONAL [Concomitant]
     Active Substance: ACETAMINOPHEN
     Indication: PAIN
     Dosage: UNK
     Route: 048
     Dates: start: 20161118, end: 20161201
  5. CALONAL [Concomitant]
     Active Substance: ACETAMINOPHEN
     Indication: DIABETIC FOOT
  6. NOVORAPID [Concomitant]
     Active Substance: INSULIN ASPART
     Dosage: 32 IU, QD
     Dates: start: 20161130, end: 20161130
  7. NOVORAPID [Concomitant]
     Active Substance: INSULIN ASPART
     Dosage: 34 IU, QD
     Dates: start: 20161218, end: 20161218
  8. NOVORAPID [Concomitant]
     Active Substance: INSULIN ASPART
     Dosage: 22 IU, QD
     Dates: start: 20161224, end: 20161224
  9. NOVORAPID [Concomitant]
     Active Substance: INSULIN ASPART
     Dosage: 24 IU, QD
     Dates: start: 20161231, end: 20161231
  10. NOVORAPID [Concomitant]
     Active Substance: INSULIN ASPART
     Dosage: 24 IU, QD
     Dates: start: 20170112, end: 20170112
  11. LANTUS [Concomitant]
     Active Substance: INSULIN GLARGINE
     Dosage: 14 IU, QD
     Dates: start: 20170124
  12. HUMALOG [Concomitant]
     Active Substance: INSULIN LISPRO
     Dosage: 30 IU, QD
     Dates: start: 20170126, end: 20170126
  13. HUMALOG [Concomitant]
     Active Substance: INSULIN LISPRO
     Dosage: 30 IU, QD
     Dates: start: 20170218, end: 20170218
  14. HUMALOG [Concomitant]
     Active Substance: INSULIN LISPRO
     Dosage: 30 IU, QD
     Dates: start: 20170221
  15. CEFAZOLIN NA [Concomitant]
     Active Substance: CEFAZOLIN SODIUM
     Indication: DIABETIC FOOT
     Dosage: 3 G, QD
     Dates: start: 20170106, end: 20170112
  16. CALONAL [Concomitant]
     Active Substance: ACETAMINOPHEN
     Indication: PYREXIA
     Dosage: UNK
     Dates: start: 20170104, end: 20170117
  17. OLOPATADINE HYDROCHLORIDE OD [Concomitant]
     Indication: ECZEMA
  18. NOVORAPID [Concomitant]
     Active Substance: INSULIN ASPART
     Dosage: 30 IU, QD
     Dates: start: 20161129, end: 20161129
  19. NOVORAPID [Concomitant]
     Active Substance: INSULIN ASPART
     Dosage: 32 IU, QD
     Dates: start: 20161210, end: 20161210
  20. NOVORAPID [Concomitant]
     Active Substance: INSULIN ASPART
     Dosage: 30 IU, QD
     Dates: start: 20161219, end: 20161219
  21. NOVORAPID [Concomitant]
     Active Substance: INSULIN ASPART
     Dosage: 20 IU, QD
     Dates: start: 20170104, end: 20170104
  22. NOVORAPID [Concomitant]
     Active Substance: INSULIN ASPART
     Dosage: 24 IU, QD
     Dates: start: 20170114, end: 20170114
  23. LANTUS [Concomitant]
     Active Substance: INSULIN GLARGINE
     Indication: DIABETES MELLITUS
     Dosage: 12 IU, QD
     Dates: start: 20161117, end: 20161118
  24. LANTUS [Concomitant]
     Active Substance: INSULIN GLARGINE
     Dosage: 16 IU, QD
     Dates: start: 20161125, end: 20161125
  25. TRESIBA [Concomitant]
     Active Substance: INSULIN DEGLUDEC
     Dosage: 20 IU, QD
     Dates: start: 20161203, end: 20161204
  26. HUMALOG [Concomitant]
     Active Substance: INSULIN LISPRO
     Indication: DIABETES MELLITUS
     Dosage: 6 IU, QD
     Dates: start: 20170123
  27. HUMALOG [Concomitant]
     Active Substance: INSULIN LISPRO
     Dosage: 28 IU, QD
     Dates: start: 20170125, end: 20170125
  28. INSULIN [Suspect]
     Active Substance: INSULIN NOS
     Indication: PRODUCT USED FOR UNKNOWN INDICATION
     Dosage: UNK
  29. ISODINE SUGAR [Concomitant]
     Indication: DIABETIC FOOT
     Dosage: UNK
     Dates: start: 20161117, end: 20161201
  30. RINDERON VG [Concomitant]
     Active Substance: BETAMETHASONE VALERATE\GENTAMICIN SULFATE
     Indication: DIABETIC FOOT
     Dosage: UNK
     Dates: start: 20161202, end: 20161215
  31. NOVORAPID [Concomitant]
     Active Substance: INSULIN ASPART
     Dosage: 32 IU, QD
     Dates: start: 20161202, end: 20161202
  32. NOVORAPID [Concomitant]
     Active Substance: INSULIN ASPART
     Dosage: 32 IU, QD
     Dates: start: 20161216, end: 20161216
  33. NOVORAPID [Concomitant]
     Active Substance: INSULIN ASPART
     Dosage: 24 IU, QD
     Dates: start: 20170111, end: 20170111
  34. TRESIBA [Concomitant]
     Active Substance: INSULIN DEGLUDEC
     Dosage: 18 IU, QD
     Dates: start: 20161201, end: 20161202
  35. TRESIBA [Concomitant]
     Active Substance: INSULIN DEGLUDEC
     Dosage: 10 IU, QD
     Dates: start: 20161220, end: 20161222
  36. TRESIBA [Concomitant]
     Active Substance: INSULIN DEGLUDEC
     Dosage: 16 IU, QD
     Dates: start: 20170104, end: 20170121
  37. HUMALOG [Concomitant]
     Active Substance: INSULIN LISPRO
     Dosage: 28 IU, QD
     Dates: start: 20170127, end: 20170127
  38. HUMALOG [Concomitant]
     Active Substance: INSULIN LISPRO
     Dosage: 28 IU, QD
     Dates: start: 20170129, end: 20170204
  39. HUMALOG [Concomitant]
     Active Substance: INSULIN LISPRO
     Dosage: 30 IU, QD
     Dates: start: 20170205, end: 20170205
  40. GENTACIN [Concomitant]
     Active Substance: GENTAMICIN SULFATE
     Indication: DIABETIC FOOT
  41. PETROLATUM SALICYLATE [Concomitant]
     Indication: PRURITUS
     Dosage: UNK
     Dates: start: 20170119, end: 20170131
  42. PETROLATUM SALICYLATE [Concomitant]
     Indication: ECZEMA
  43. BESOFTEN [Concomitant]
     Active Substance: PENTOSAN POLYSULFATE SODIUM
     Indication: PRURITUS
     Dosage: UNK
     Dates: start: 20170101, end: 20170131
  44. LEVOFLOXACIN OD [Concomitant]
     Active Substance: LEVOFLOXACIN
     Indication: DIABETIC FOOT
     Dosage: 500 MG, QD
     Route: 048
     Dates: start: 20161118, end: 20161124
  45. NOVORAPID [Concomitant]
     Active Substance: INSULIN ASPART
     Dosage: 26 IU, QD
     Dates: start: 20161121, end: 20161126
  46. NOVORAPID [Concomitant]
     Active Substance: INSULIN ASPART
     Dosage: 30 IU, QD
     Dates: start: 20161127, end: 20161127
  47. NOVORAPID [Concomitant]
     Active Substance: INSULIN ASPART
     Dosage: 30 IU, QD
     Dates: start: 20161204, end: 20161206
  48. NOVORAPID [Concomitant]
     Active Substance: INSULIN ASPART
     Dosage: 30 IU, QD
     Dates: start: 20161215, end: 20161215
  49. NOVORAPID [Concomitant]
     Active Substance: INSULIN ASPART
     Dosage: 20 IU, QD
     Dates: start: 20161221, end: 20161221
  50. NOVORAPID [Concomitant]
     Active Substance: INSULIN ASPART
     Dosage: 18 IU, QD
     Dates: start: 20161230, end: 20161230
  51. NOVORAPID [Concomitant]
     Active Substance: INSULIN ASPART
     Dosage: 26 IU, QD
     Dates: start: 20170109, end: 20170109
  52. LANTUS [Concomitant]
     Active Substance: INSULIN GLARGINE
     Dosage: 14 IU, QD
     Dates: start: 20161119, end: 20161124
  53. TRESIBA [Concomitant]
     Active Substance: INSULIN DEGLUDEC
     Dosage: 24 IU, QD
     Dates: start: 20161215, end: 20161219
  54. HUMALOG [Concomitant]
     Active Substance: INSULIN LISPRO
     Dosage: 26 IU, QD
     Dates: start: 20170124, end: 20170124
  55. HUMALOG [Concomitant]
     Active Substance: INSULIN LISPRO
     Dosage: 28 IU, QD
     Dates: start: 20170213, end: 20170217
  56. HUMALOG [Concomitant]
     Active Substance: INSULIN LISPRO
     Dosage: 32 IU, QD
     Dates: start: 20170219, end: 20170219
  57. METRELEPTIN SHIONOGI [Suspect]
     Active Substance: METRELEPTIN
     Dosage: 1.14 MG, UNK
     Route: 058
     Dates: start: 20161223, end: 20170130
  58. LEVOFLOXACIN OD [Concomitant]
     Active Substance: LEVOFLOXACIN
     Dosage: UNK
     Dates: start: 20170105, end: 20170106
  59. NOVORAPID [Concomitant]
     Active Substance: INSULIN ASPART
     Dosage: 24 IU, QD
     Dates: start: 20161119, end: 20161120
  60. NOVORAPID [Concomitant]
     Active Substance: INSULIN ASPART
     Dosage: 28 IU, QD
     Dates: start: 20161128, end: 20161128
  61. NOVORAPID [Concomitant]
     Active Substance: INSULIN ASPART
     Dosage: 16 IU, QD
     Dates: start: 20161226, end: 20161226
  62. NOVORAPID [Concomitant]
     Active Substance: INSULIN ASPART
     Dosage: 20 IU, QD
     Dates: start: 20161227, end: 20161227
  63. NOVORAPID [Concomitant]
     Active Substance: INSULIN ASPART
     Dosage: 24 IU, QD
     Dates: start: 20170115, end: 20170115
  64. HUMALOG [Concomitant]
     Active Substance: INSULIN LISPRO
     Dosage: 28 IU, QD
     Dates: start: 20170206, end: 20170211
  65. MYSER [Concomitant]
     Active Substance: DIFLUPREDNATE
     Indication: ECZEMA
  66. NOVORAPID [Concomitant]
     Active Substance: INSULIN ASPART
     Dosage: 30 IU, QD
     Dates: start: 20161201, end: 20161201
  67. NOVORAPID [Concomitant]
     Active Substance: INSULIN ASPART
     Dosage: 32 IU, QD
     Dates: start: 20161207, end: 20161207
  68. NOVORAPID [Concomitant]
     Active Substance: INSULIN ASPART
     Dosage: 32 IU, QD
     Dates: start: 20161212, end: 20161212
  69. NOVORAPID [Concomitant]
     Active Substance: INSULIN ASPART
     Dosage: 32 IU, QD
     Dates: start: 20161213, end: 20161213
  70. NOVORAPID [Concomitant]
     Active Substance: INSULIN ASPART
     Dosage: 18 IU, QD
     Dates: start: 20161220, end: 20161220
  71. NOVORAPID [Concomitant]
     Active Substance: INSULIN ASPART
     Dosage: 20 IU, QD
     Dates: start: 20170102, end: 20170102
  72. NOVORAPID [Concomitant]
     Active Substance: INSULIN ASPART
     Dosage: 20 IU, QD
     Dates: start: 20170103, end: 20170103
  73. NOVORAPID [Concomitant]
     Active Substance: INSULIN ASPART
     Dosage: 20 IU, QD
     Dates: start: 20170108, end: 20170108
  74. NOVORAPID [Concomitant]
     Active Substance: INSULIN ASPART
     Dosage: 22 IU, QD
     Dates: start: 20170113, end: 20170113
  75. NOVORAPID [Concomitant]
     Active Substance: INSULIN ASPART
     Dosage: 26 IU, QD
     Dates: start: 20170116, end: 20170116
  76. BESOFTEN [Concomitant]
     Active Substance: PENTOSAN POLYSULFATE SODIUM
     Indication: ECZEMA
  77. OLOPATADINE HYDROCHLORIDE OD [Concomitant]
     Indication: PRURITUS
     Dosage: 10 MG, QD
     Route: 048
     Dates: start: 20170119, end: 20170131
  78. NOVORAPID [Concomitant]
     Active Substance: INSULIN ASPART
     Indication: DIABETES MELLITUS
     Dosage: 22 IU, QD
     Dates: start: 20161117, end: 20161118
  79. NOVORAPID [Concomitant]
     Active Substance: INSULIN ASPART
     Dosage: 32 IU, QD
     Dates: start: 20161203, end: 20161203
  80. NOVORAPID [Concomitant]
     Active Substance: INSULIN ASPART
     Dosage: 30 IU, QD
     Dates: start: 20161208, end: 20161209
  81. NOVORAPID [Concomitant]
     Active Substance: INSULIN ASPART
     Dosage: 24 IU, QD
     Dates: start: 20161222, end: 20161223
  82. NOVORAPID [Concomitant]
     Active Substance: INSULIN ASPART
     Dosage: 24 IU, QD
     Dates: start: 20170107, end: 20170107
  83. TRESIBA [Concomitant]
     Active Substance: INSULIN DEGLUDEC
     Dosage: 22 IU, QD
     Dates: start: 20161205, end: 20161214
  84. HUMALOG [Concomitant]
     Active Substance: INSULIN LISPRO
     Dosage: 32 IU, QD
     Dates: start: 20170128, end: 20170128
  85. HUMALOG [Concomitant]
     Active Substance: INSULIN LISPRO
     Dosage: 30 IU, QD
     Dates: start: 20170212, end: 20170212
  86. METRELEPTIN SHIONOGI [Suspect]
     Active Substance: METRELEPTIN
     Indication: LIPOATROPHY
     Dosage: 0.57 MG, UNK
     Route: 058
     Dates: start: 20161220, end: 20161222
  87. VICCILLIN [Concomitant]
     Active Substance: AMPICILLIN
     Indication: DIABETIC FOOT
     Dosage: 1 G, QD
     Dates: start: 20161116
  88. GENTACIN [Concomitant]
     Active Substance: GENTAMICIN SULFATE
     Indication: POSTOPERATIVE WOUND INFECTION
     Dosage: UNK
     Dates: start: 20161118, end: 20161201
  89. NOVORAPID [Concomitant]
     Active Substance: INSULIN ASPART
     Dosage: 30 IU, QD
     Dates: start: 20161211, end: 20161211
  90. NOVORAPID [Concomitant]
     Active Substance: INSULIN ASPART
     Dosage: 34 IU, QD
     Dates: start: 20161214, end: 20161214
  91. NOVORAPID [Concomitant]
     Active Substance: INSULIN ASPART
     Dosage: 32 IU, QD
     Dates: start: 20161217, end: 20161217
  92. NOVORAPID [Concomitant]
     Active Substance: INSULIN ASPART
     Dosage: 18 IU, QD
     Dates: start: 20161225, end: 20161225
  93. NOVORAPID [Concomitant]
     Active Substance: INSULIN ASPART
     Dosage: 22 IU, QD
     Dates: start: 20161228, end: 20161228
  94. NOVORAPID [Concomitant]
     Active Substance: INSULIN ASPART
     Dosage: 22 IU, QD
     Dates: start: 20161229, end: 20161229
  95. NOVORAPID [Concomitant]
     Active Substance: INSULIN ASPART
     Dosage: 18 IU, QD
     Dates: start: 20170101, end: 20170101
  96. NOVORAPID [Concomitant]
     Active Substance: INSULIN ASPART
     Dosage: 20 IU, QD
     Dates: start: 20170105, end: 20170105
  97. NOVORAPID [Concomitant]
     Active Substance: INSULIN ASPART
     Dosage: 28 IU, QD
     Dates: start: 20170106, end: 20170106
  98. NOVORAPID [Concomitant]
     Active Substance: INSULIN ASPART
     Dosage: 18 IU, QD
     Dates: start: 20170110, end: 20170110
  99. TRESIBA [Concomitant]
     Active Substance: INSULIN DEGLUDEC
     Indication: DIABETES MELLITUS
     Dosage: 16 IU, QD
     Dates: start: 20161126, end: 20161130
  100. TRESIBA [Concomitant]
     Active Substance: INSULIN DEGLUDEC
     Dosage: 14 IU, QD
     Dates: start: 20161223, end: 20170103
  101. TRESIBA [Concomitant]
     Active Substance: INSULIN DEGLUDEC
     Dosage: 14 IU, QD
     Dates: start: 20170122, end: 20170123
  102. HUMALOG [Concomitant]
     Active Substance: INSULIN LISPRO
     Dosage: 28 IU, QD
     Dates: start: 20170220, end: 20170220

REACTIONS (5)
  - Pruritus [Recovering/Resolving]
  - Eosinophil count increased [Recovering/Resolving]
  - Ligament sprain [Recovering/Resolving]
  - Eczema [Recovering/Resolving]
  - Blood immunoglobulin E increased [Recovering/Resolving]

NARRATIVE: CASE EVENT DATE: 20170108
